FAERS Safety Report 4850940-4 (Version None)
Quarter: 2005Q4

REPORT INFORMATION
  Report Type: 
  Country: None (occurrence: None)
  Receive Date: 20051208
  Receipt Date: 20051123
  Transmission Date: 20060501
  Serious: Yes (Life-Threatening, Hospitalization, Other)
  Sender: FDA-Public Use
  Company Number: M03-341-066

PATIENT
  Age: 53 Year
  Sex: Male
  Weight: 81 kg

DRUGS (6)
  1. VELCADE [Suspect]
     Indication: MULTIPLE MYELOMA
     Dosage: 1.30  MG/M2, INTRAVENOUS
     Route: 042
     Dates: start: 20030708, end: 20030807
  2. PROCRIT [Concomitant]
  3. PREDNISONE TAB [Concomitant]
  4. MAGNESIUM [Concomitant]
  5. POTASSIUM [Concomitant]
  6. PRILOSEC [Concomitant]

REACTIONS (25)
  - ACTIVATED PARTIAL THROMBOPLASTIN TIME PROLONGED [None]
  - ALANINE AMINOTRANSFERASE INCREASED [None]
  - ANAEMIA [None]
  - ASPARTATE AMINOTRANSFERASE INCREASED [None]
  - ASTHENIA [None]
  - BLOOD PH DECREASED [None]
  - CARDIAC TAMPONADE [None]
  - CARDIOMEGALY [None]
  - DEHYDRATION [None]
  - DYSPNOEA EXERTIONAL [None]
  - EJECTION FRACTION DECREASED [None]
  - FAECES DISCOLOURED [None]
  - GALLBLADDER POLYP [None]
  - HEADACHE [None]
  - HEPATIC ENZYME INCREASED [None]
  - HYPERCOAGULATION [None]
  - INTERNATIONAL NORMALISED RATIO INCREASED [None]
  - MELAENA [None]
  - NAUSEA [None]
  - PANCYTOPENIA [None]
  - PERICARDITIS [None]
  - PETECHIAE [None]
  - RENAL FAILURE [None]
  - THROMBOCYTOPENIA [None]
  - VOMITING [None]
